FAERS Safety Report 20526622 (Version 2)
Quarter: 2022Q1

REPORT INFORMATION
  Report Type: Report from Study
  Country: US (occurrence: US)
  Receive Date: 20220228
  Receipt Date: 20220330
  Transmission Date: 20220423
  Serious: Yes (Hospitalization, Other)
  Sender: FDA-Public Use
  Company Number: US-TAKEDA-2022TUS011964

PATIENT
  Age: 64 Year
  Sex: Female

DRUGS (8)
  1. TEDUGLUTIDE [Suspect]
     Active Substance: TEDUGLUTIDE
     Indication: Short-bowel syndrome
     Dosage: 6.5 MILLIGRAM, QD
     Route: 042
     Dates: start: 201404, end: 201811
  2. TEDUGLUTIDE [Suspect]
     Active Substance: TEDUGLUTIDE
     Indication: Short-bowel syndrome
     Dosage: 6.5 MILLIGRAM, QD
     Route: 042
     Dates: start: 201404, end: 201811
  3. TEDUGLUTIDE [Suspect]
     Active Substance: TEDUGLUTIDE
     Indication: Short-bowel syndrome
     Dosage: 6.5 MILLIGRAM, QD
     Route: 042
     Dates: start: 201404, end: 201811
  4. TEDUGLUTIDE [Suspect]
     Active Substance: TEDUGLUTIDE
     Indication: Short-bowel syndrome
     Dosage: 6.5 MILLIGRAM, QD
     Route: 042
     Dates: start: 201404, end: 201811
  5. MAGNESIUM OXIDE [Concomitant]
     Active Substance: MAGNESIUM OXIDE
     Indication: Hypomagnesaemia
     Dosage: 400 MILLIGRAM, QD
     Route: 048
     Dates: start: 20180918
  6. LOPERAMIDE [Concomitant]
     Active Substance: LOPERAMIDE
     Indication: Short-bowel syndrome
     Dosage: 2 MILLIGRAM, QD
     Route: 048
     Dates: start: 20180918
  7. INFLUENZA VIRUS VACCINE [Concomitant]
     Active Substance: INFLUENZA VIRUS VACCINE
     Indication: Antiviral prophylaxis
     Dosage: 0.5 MILLILITER, ONE DOSE
     Route: 030
     Dates: start: 20180917, end: 20180917
  8. NOVOLOG [Concomitant]
     Active Substance: INSULIN ASPART
     Indication: Diabetes mellitus
     Dosage: 66 INTERNATIONAL UNIT, PRN
     Route: 058

REACTIONS (1)
  - Arteriovenous fistula thrombosis [Recovered/Resolved]

NARRATIVE: CASE EVENT DATE: 20210831
